FAERS Safety Report 7982906-X (Version None)
Quarter: 2011Q4

REPORT INFORMATION
  Report Type: 
  Country: None (occurrence: None)
  Receive Date: 20111215
  Receipt Date: 20111205
  Transmission Date: 20120403
  Serious: Yes (Death)
  Sender: FDA-Public Use
  Company Number: PHHY2011US108586

PATIENT
  Age: 29 Year
  Sex: Male

DRUGS (4)
  1. THIAZOLIDINEDIONES [Suspect]
  2. CARBAMAZEPINE [Suspect]
  3. METFORMIN HCL [Suspect]
  4. CITALOPRAM [Suspect]

REACTIONS (1)
  - COMPLETED SUICIDE [None]
